FAERS Safety Report 25582747 (Version 1)
Quarter: 2025Q3

REPORT INFORMATION
  Report Type: Report from Study
  Country: US (occurrence: US)
  Receive Date: 20250720
  Receipt Date: 20250720
  Transmission Date: 20251020
  Serious: Yes (Other)
  Sender: SANOFI AVENTIS
  Company Number: US-SA-2025SA203272

PATIENT
  Age: 50 Year
  Sex: Male

DRUGS (1)
  1. AVALGLUCOSIDASE ALFA-NGPT [Suspect]
     Active Substance: AVALGLUCOSIDASE ALFA-NGPT
     Indication: Glycogen storage disease type II
     Dosage: 1750 (UNITS UNSPECIFIED), QOW
     Route: 042
     Dates: start: 202112

REACTIONS (4)
  - Ocular stroke [Recovering/Resolving]
  - Ocular hypertension [Recovering/Resolving]
  - Vitreous floaters [Recovering/Resolving]
  - Vision blurred [Recovering/Resolving]

NARRATIVE: CASE EVENT DATE: 20250101
